FAERS Safety Report 9297237 (Version 21)
Quarter: 2015Q3

REPORT INFORMATION
  Report Type: Report from Study
  Country: US (occurrence: US)
  Receive Date: 20130520
  Receipt Date: 20150916
  Transmission Date: 20151125
  Serious: Yes (Hospitalization, Other)
  Sender: FDA-Public Use
  Company Number: US-BIOGENIDEC-2013BI042122

PATIENT
  Age: 32 Year
  Sex: Male

DRUGS (3)
  1. AMPYRA [Concomitant]
     Active Substance: DALFAMPRIDINE
  2. TYSABRI [Suspect]
     Active Substance: NATALIZUMAB
     Indication: MULTIPLE SCLEROSIS
     Route: 042
     Dates: start: 20080314, end: 20130405
  3. ANDROGEL [Concomitant]
     Active Substance: TESTOSTERONE

REACTIONS (6)
  - Immune reconstitution inflammatory syndrome [Recovered/Resolved]
  - Central nervous system lesion [Unknown]
  - Sinus disorder [Unknown]
  - Progressive multifocal leukoencephalopathy [Not Recovered/Not Resolved]
  - JC virus granule cell neuronopathy [Unknown]
  - Fall [Unknown]

NARRATIVE: CASE EVENT DATE: 2013
